FAERS Safety Report 8246567-7 (Version None)
Quarter: 2012Q1

REPORT INFORMATION
  Report Type: 
  Country: None (occurrence: None)
  Receive Date: 20120330
  Receipt Date: 20120326
  Transmission Date: 20120608
  Serious: Yes (Death, Hospitalization)
  Sender: FDA-Public Use
  Company Number: JP-SANOFI-AVENTIS-2012SA018437

PATIENT
  Age: 73 Year
  Sex: Male
  Weight: 74 kg

DRUGS (5)
  1. TAXOTERE [Suspect]
     Indication: PROSTATE CANCER
     Dosage: FREQUENCY:EVERY 4 WEEKS
     Route: 042
     Dates: start: 20111213
  2. PREDNISOLONE [Concomitant]
     Route: 048
     Dates: start: 20120110, end: 20120131
  3. PREDNISOLONE [Concomitant]
     Dates: start: 20120213
  4. TAXOTERE [Suspect]
     Route: 042
     Dates: start: 20120110, end: 20120110
  5. PREDNISOLONE [Concomitant]
     Indication: PROSTATE CANCER
     Route: 048
     Dates: start: 20111213, end: 20120110

REACTIONS (9)
  - DYSPNOEA [None]
  - DELIRIUM [None]
  - FOREIGN BODY [None]
  - PNEUMOCYSTIS JIROVECI PNEUMONIA [None]
  - FEBRILE NEUTROPENIA [None]
  - OXYGEN SATURATION DECREASED [None]
  - BLOOD PRESSURE DECREASED [None]
  - PYREXIA [None]
  - INSOMNIA [None]
